FAERS Safety Report 11006564 (Version 1)
Quarter: 2015Q2

REPORT INFORMATION
  Report Type: Spontaneous
  Country: AU (occurrence: AU)
  Receive Date: 20150409
  Receipt Date: 20150409
  Transmission Date: 20150821
  Serious: Yes (Other)
  Sender: FDA-Public Use
  Company Number: AU-BAUSCH-BL-2015-011007

PATIENT
  Sex: Female

DRUGS (21)
  1. GRANISETRON NOS [Concomitant]
     Indication: PRODUCT USED FOR UNKNOWN INDICATION
  2. FLUOROURACIL NOS [Suspect]
     Active Substance: FLUOROURACIL
     Indication: PRODUCT USED FOR UNKNOWN INDICATION
     Route: 065
  3. NILSTAT [Concomitant]
     Active Substance: NYSTATIN
     Indication: PRODUCT USED FOR UNKNOWN INDICATION
  4. ATROPINE SULPHATE NOS [Concomitant]
     Indication: PRODUCT USED FOR UNKNOWN INDICATION
  5. GENTAMICIN SULPHATE NOS [Concomitant]
     Indication: PRODUCT USED FOR UNKNOWN INDICATION
  6. HEPARIN SODIUM NOS [Concomitant]
     Indication: PRODUCT USED FOR UNKNOWN INDICATION
  7. PARACETAMOL NOS [Concomitant]
     Indication: PRODUCT USED FOR UNKNOWN INDICATION
  8. DEXAMETHASONE NOS [Concomitant]
     Indication: PRODUCT USED FOR UNKNOWN INDICATION
  9. PIPERACILLIN AND TAZOBACTAM [Concomitant]
     Active Substance: PIPERACILLIN SODIUM\TAZOBACTAM SODIUM
     Indication: PRODUCT USED FOR UNKNOWN INDICATION
  10. SLOW-K [Concomitant]
     Active Substance: POTASSIUM CHLORIDE
     Indication: PRODUCT USED FOR UNKNOWN INDICATION
  11. ONDANSETRON HYDROCHLORIDE DIHYDRATE NOS [Concomitant]
     Indication: PRODUCT USED FOR UNKNOWN INDICATION
  12. PHENERGAN [Concomitant]
     Active Substance: PROMETHAZINE HYDROCHLORIDE
     Indication: PRODUCT USED FOR UNKNOWN INDICATION
  13. LIPITOR [Concomitant]
     Active Substance: ATORVASTATIN CALCIUM
     Indication: PRODUCT USED FOR UNKNOWN INDICATION
  14. OMEPRAZOLE NOS [Concomitant]
     Indication: PRODUCT USED FOR UNKNOWN INDICATION
  15. LEUCOVORIN [Concomitant]
     Active Substance: LEUCOVORIN
     Indication: PRODUCT USED FOR UNKNOWN INDICATION
  16. ACICLOVIR NOS [Concomitant]
     Indication: PRODUCT USED FOR UNKNOWN INDICATION
  17. HYDROCORTISONE NOS [Concomitant]
     Indication: PRODUCT USED FOR UNKNOWN INDICATION
  18. POLY-TEARS [Concomitant]
     Indication: PRODUCT USED FOR UNKNOWN INDICATION
  19. IRINOTECAN HYDROCHLORIDE NOS [Suspect]
     Active Substance: IRINOTECAN HYDROCHLORIDE
     Indication: PRODUCT USED FOR UNKNOWN INDICATION
     Route: 065
  20. CHLORVESCENT [Concomitant]
     Active Substance: POTASSIUM CHLORIDE
     Indication: PRODUCT USED FOR UNKNOWN INDICATION
  21. CHLORHEXIDINE NOS [Concomitant]
     Indication: PRODUCT USED FOR UNKNOWN INDICATION

REACTIONS (3)
  - Diarrhoea [Unknown]
  - Vomiting [Unknown]
  - Neutropenia [Unknown]
